FAERS Safety Report 7367856-4 (Version None)
Quarter: 2011Q1

REPORT INFORMATION
  Report Type: 
  Country: None (occurrence: None)
  Receive Date: 20110322
  Receipt Date: 20110314
  Transmission Date: 20110831
  Serious: Yes (Hospitalization)
  Sender: FDA-Public Use
  Company Number: US-GILEAD-2010-0032988

PATIENT
  Sex: Male

DRUGS (23)
  1. NITROGLYCERIN [Concomitant]
  2. LIPITOR [Concomitant]
  3. ADVAIR DISKUS 100/50 [Concomitant]
  4. FISH OIL [Concomitant]
  5. METFORMIN HCL [Concomitant]
  6. MINOCYCLINE HCL [Concomitant]
  7. VITAMIN D [Concomitant]
  8. MULTI-VITAMINS [Concomitant]
  9. PLAVIX [Concomitant]
  10. METOPROLOL TARTRATE [Concomitant]
  11. MUCINEX DM [Concomitant]
  12. OMEPRAZOLE [Concomitant]
  13. SYNTHROID [Concomitant]
  14. FUROSEMIDE [Concomitant]
  15. DILTIAZEM [Concomitant]
  16. HUMULIN R [Concomitant]
  17. NAPROXEN [Concomitant]
  18. LYRICA [Concomitant]
  19. LETAIRIS [Suspect]
     Indication: PULMONARY HYPERTENSION
     Route: 048
     Dates: start: 20100904
  20. ISOSORBIDE MN [Concomitant]
  21. ASPIRIN [Concomitant]
  22. LANOXIN [Concomitant]
  23. ALREX [Concomitant]

REACTIONS (6)
  - CHRONIC OBSTRUCTIVE PULMONARY DISEASE [None]
  - CARDIAC FAILURE CONGESTIVE [None]
  - OBESITY [None]
  - HYPOXIA [None]
  - RESPIRATORY FAILURE [None]
  - PULMONARY ARTERIAL HYPERTENSION [None]
